FAERS Safety Report 4770970-0 (Version None)
Quarter: 2005Q3

REPORT INFORMATION
  Report Type: 
  Country: None (occurrence: None)
  Receive Date: 20050914
  Receipt Date: 20050830
  Transmission Date: 20060218
  Serious: Yes (Hospitalization)
  Sender: FDA-Public Use
  Company Number: 12238

PATIENT
  Age: 76 Year
  Sex: Male
  Weight: 64 kg

DRUGS (9)
  1. ETOPOSIDE [Suspect]
  2. VINCRISTINE [Suspect]
  3. MOVICOL [Concomitant]
  4. SIMVASTATIN [Concomitant]
  5. LANSOPRAZOLE [Concomitant]
  6. ASPIRIN [Concomitant]
  7. DOMPERIDONE [Concomitant]
  8. XATRAL XL [Concomitant]
  9. CIPROFLOXACIN [Concomitant]

REACTIONS (1)
  - STOMATITIS [None]
